FAERS Safety Report 7787359-2 (Version None)
Quarter: 2011Q3

REPORT INFORMATION
  Report Type: 
  Country: None (occurrence: None)
  Receive Date: 20110929
  Receipt Date: 20110916
  Transmission Date: 20111222
  Serious: Yes (Other)
  Sender: FDA-Public Use
  Company Number: PHHY2011BR82977

PATIENT
  Age: 21 Year
  Sex: Male

DRUGS (4)
  1. RASILEZ [Suspect]
     Indication: PROTEINURIA
     Dosage: 1 DF, QD
     Dates: start: 20101201
  2. ENALAPRIL MALEATE [Suspect]
     Dosage: 80 MG, BID
  3. ENALAPRIL MALEATE [Suspect]
     Dosage: 60 MG, TID
     Dates: start: 20090101
  4. SPIRONOLACTONE [Suspect]
     Dosage: 25 MG, UNK

REACTIONS (4)
  - PROTEINURIA [None]
  - BLOOD PRESSURE DECREASED [None]
  - BLOOD POTASSIUM INCREASED [None]
  - BLOOD CREATININE INCREASED [None]
